FAERS Safety Report 8766474 (Version 3)
Quarter: 2013Q4

REPORT INFORMATION
  Report Type: Report from Study
  Country: JP (occurrence: JP)
  Receive Date: 20120906
  Receipt Date: 20131108
  Transmission Date: 20140711
  Serious: Yes (Hospitalization)
  Sender: FDA-Public Use
  Company Number: JP-009507513-2012SP020899

PATIENT
  Age: 57 Year
  Sex: Female
  Weight: 62 kg

DRUGS (20)
  1. PEGINTERFERON ALFA-2B [Suspect]
     Indication: HEPATITIS C
     Dosage: 1.5 ?G/KG, QW
     Route: 058
     Dates: start: 20120123, end: 20120316
  2. REBETOL [Suspect]
     Indication: HEPATITIS C
     Dosage: 600 MG, QD
     Route: 048
     Dates: start: 20120123, end: 20120215
  3. REBETOL [Suspect]
     Dosage: 200 MG, QD
     Route: 048
     Dates: start: 20120216, end: 20120323
  4. TELAVIC [Suspect]
     Indication: HEPATITIS C
     Dosage: 2250 MG, QD
     Route: 048
     Dates: start: 20120123, end: 20120125
  5. TELAVIC [Suspect]
     Dosage: 1500 MG, QD
     Route: 048
     Dates: start: 20120201, end: 20120316
  6. ANTIVIRAL (UNSPECIFIED) [Suspect]
     Indication: HEPATITIS C
     Dosage: 2250 MG, QD
     Route: 048
     Dates: start: 20120123, end: 20120125
  7. ANTIVIRAL (UNSPECIFIED) [Suspect]
     Dosage: 1500 MG, QD
     Route: 048
     Dates: start: 20120201, end: 20120323
  8. URSO [Concomitant]
     Indication: HEPATITIS C
     Dosage: FORMULATION:POR(OTHER DETAILS UNKNOWN)
     Route: 048
  9. GASTER D [Concomitant]
     Indication: PROPHYLAXIS
     Dosage: 40 MG, QD
     Route: 048
     Dates: end: 20120126
  10. NABOAL [Concomitant]
     Indication: PROPHYLAXIS
     Dosage: TRADE NAME:NABOAL(2 CAP/AUTOREGULATION)
     Route: 048
     Dates: start: 20120123, end: 20120229
  11. TAKEPRON [Concomitant]
     Indication: PROPHYLAXIS
     Dosage: 30 MG, QD
     Route: 048
     Dates: start: 20120126
  12. VOLTAREN SR [Concomitant]
     Indication: PROPHYLAXIS
     Dosage: 2 CAP/AUTOREGULATION, UPDATE (17MAY2012): STOP DATE
     Route: 048
     Dates: start: 20120302, end: 20120308
  13. GASMOTIN [Concomitant]
     Indication: PROPHYLAXIS
     Dosage: 6 DF, QD
     Route: 048
     Dates: start: 20120220
  14. ALLEGRA [Concomitant]
     Indication: PROPHYLAXIS
     Dosage: UPDATE (17MAY2012): STOP DATE
     Route: 048
     Dates: start: 20120124, end: 20120308
  15. ANTEBATE [Concomitant]
     Indication: PRODUCT USED FOR UNKNOWN INDICATION
     Dosage: UNK UNK, UNKNOWN
     Route: 065
     Dates: start: 20120124
  16. PREDONINE [Concomitant]
     Indication: PRODUCT USED FOR UNKNOWN INDICATION
     Dosage: 30 MG, QD
     Route: 048
     Dates: start: 20120125, end: 20120322
  17. ALESION [Concomitant]
     Indication: PROPHYLAXIS
     Dosage: 10 MG, QD
     Route: 048
     Dates: start: 20120130
  18. ALOSENN (OLD FORMULA) [Concomitant]
     Indication: PROPHYLAXIS
     Dosage: 0.5 G, QD
     Route: 048
     Dates: start: 20120131
  19. MYSLEE [Concomitant]
     Indication: PRODUCT USED FOR UNKNOWN INDICATION
     Dosage: 5 MG, QD
     Route: 048
     Dates: start: 20120126
  20. ZYLORIC [Concomitant]
     Indication: PRODUCT USED FOR UNKNOWN INDICATION
     Dosage: UPDATE (17MAY2012): STOP DATE, FREQUENCY, DOSE AND ROUTE
     Route: 048
     Dates: start: 20120309, end: 20120315

REACTIONS (1)
  - Depressive symptom [Recovered/Resolved]
